FAERS Safety Report 12107296 (Version 1)
Quarter: 2016Q1

REPORT INFORMATION
  Report Type: Spontaneous
  Country: FR (occurrence: FR)
  Receive Date: 20160223
  Receipt Date: 20160223
  Transmission Date: 20160526
  Serious: Yes (Death, Hospitalization)
  Sender: FDA-Public Use
  Company Number: PHHY2016FR022056

PATIENT
  Age: 61 Year
  Sex: Male

DRUGS (5)
  1. ZARZIO [Suspect]
     Active Substance: FILGRASTIM
     Indication: PRODUCT USED FOR UNKNOWN INDICATION
     Dosage: 30 MIU, ONCE/SINGLE
     Route: 058
     Dates: start: 20151109
  2. FLUOROURACILE ACCORD [Suspect]
     Active Substance: FLUOROURACIL
     Indication: CHEMOTHERAPY
     Dosage: 1312.5 MG, QD
     Route: 042
     Dates: start: 20151103, end: 20151107
  3. BISOPROLOL [Concomitant]
     Active Substance: BISOPROLOL
     Indication: PRODUCT USED FOR UNKNOWN INDICATION
     Route: 048
  4. CARBOPLATINO ACCORD [Suspect]
     Active Substance: CARBOPLATIN
     Indication: CHEMOTHERAPY
     Dosage: 131.25 MG, ONCE/SINGLE
     Route: 042
     Dates: start: 20151103
  5. DOCETAXEL HOSPIRA [Suspect]
     Active Substance: DOCETAXEL
     Indication: CHEMOTHERAPY
     Dosage: 131.25 MG, ONCE/SINGLE
     Route: 042
     Dates: start: 20151103

REACTIONS (11)
  - Pseudomonas test positive [None]
  - Escherichia test positive [None]
  - Pancytopenia [Fatal]
  - Rectal haemorrhage [None]
  - Gastrointestinal ischaemia [Fatal]
  - Acute kidney injury [Unknown]
  - Multiple organ dysfunction syndrome [Unknown]
  - Post procedural complication [None]
  - Pathogen resistance [None]
  - Septic shock [Fatal]
  - Hypokalaemia [None]

NARRATIVE: CASE EVENT DATE: 20151109
